FAERS Safety Report 13679604 (Version 1)
Quarter: 2017Q2

REPORT INFORMATION
  Report Type: Spontaneous
  Country: CL (occurrence: CL)
  Receive Date: 20170622
  Receipt Date: 20170622
  Transmission Date: 20170830
  Serious: Yes (Other)
  Sender: FDA-Public Use
  Company Number: CL-SA-A01200508244

PATIENT
  Age: 30 Year
  Sex: Female

DRUGS (3)
  1. LEUCOVORIN. [Concomitant]
     Active Substance: LEUCOVORIN
     Indication: COLORECTAL CANCER
     Route: 065
     Dates: start: 200409, end: 200409
  2. FLUOROURACIL. [Concomitant]
     Active Substance: FLUOROURACIL
     Indication: COLORECTAL CANCER
     Route: 065
     Dates: start: 200409, end: 200409
  3. OXALIPLATIN. [Suspect]
     Active Substance: OXALIPLATIN
     Indication: COLORECTAL CANCER
     Route: 042
     Dates: start: 20040910, end: 20040910

REACTIONS (5)
  - Dyspnoea [Recovered/Resolved]
  - Cough [Recovered/Resolved]
  - Lung infiltration [Recovered/Resolved]
  - Organising pneumonia [Recovered/Resolved]
  - Paraesthesia [Recovered/Resolved]

NARRATIVE: CASE EVENT DATE: 200409
